FAERS Safety Report 7392866-0 (Version None)
Quarter: 2011Q1

REPORT INFORMATION
  Report Type: 
  Country: None (occurrence: None)
  Receive Date: 20110330
  Receipt Date: 20110330
  Transmission Date: 20110831
  Serious: Yes (Other)
  Sender: FDA-Public Use
  Company Number: None

PATIENT
  Age: 53 Year
  Sex: Female
  Weight: 97.5234 kg

DRUGS (1)
  1. BISOPROLOL FUMARATE AND HYDROCHLOROTHIAZIDE [Suspect]
     Indication: HYPERTENSION
     Dosage: 5-6.25MGTAB MYLAN 1 DAILY PO
     Route: 048
     Dates: start: 20100101, end: 20110331

REACTIONS (24)
  - MYALGIA [None]
  - DISTURBANCE IN ATTENTION [None]
  - MOOD ALTERED [None]
  - HEADACHE [None]
  - HEART RATE IRREGULAR [None]
  - FEELING ABNORMAL [None]
  - DIZZINESS [None]
  - SKIN EXFOLIATION [None]
  - VISION BLURRED [None]
  - RASH [None]
  - HYPOACUSIS [None]
  - CHILLS [None]
  - MENTAL STATUS CHANGES [None]
  - COUGH [None]
  - CHEST DISCOMFORT [None]
  - ASTHENIA [None]
  - CONTUSION [None]
  - AMNESIA [None]
  - RESTLESSNESS [None]
  - ANXIETY [None]
  - DYSPHONIA [None]
  - PYREXIA [None]
  - TINNITUS [None]
  - FATIGUE [None]
